FAERS Safety Report 8047962-1 (Version None)
Quarter: 2012Q1

REPORT INFORMATION
  Report Type: 
  Country: None (occurrence: None)
  Receive Date: 20120116
  Receipt Date: 20120103
  Transmission Date: 20120608
  Serious: Yes (Death)
  Sender: FDA-Public Use
  Company Number: US-ABBOTT-12P-163-0892461-04

PATIENT
  Sex: Male

DRUGS (13)
  1. NIASPAN [Suspect]
     Indication: DYSLIPIDAEMIA
  2. SIMVASTATIN [Concomitant]
     Indication: ARTERIOSCLEROSIS
     Route: 048
     Dates: start: 20061031, end: 20110212
  3. BETA-BLOCKERS [Concomitant]
     Indication: PRODUCT USED FOR UNKNOWN INDICATION
  4. DIGITALIS PREPARATIONS [Concomitant]
     Indication: PRODUCT USED FOR UNKNOWN INDICATION
  5. NITRATES [Concomitant]
     Indication: PRODUCT USED FOR UNKNOWN INDICATION
  6. ASPIRIN [Concomitant]
     Indication: PRODUCT USED FOR UNKNOWN INDICATION
  7. NSAID'S [Concomitant]
     Indication: PRODUCT USED FOR UNKNOWN INDICATION
  8. PLAVIX [Concomitant]
     Indication: PRODUCT USED FOR UNKNOWN INDICATION
  9. SIMVASTATIN [Concomitant]
     Indication: DYSLIPIDAEMIA
  10. ACE INHIBITORS [Concomitant]
     Indication: PRODUCT USED FOR UNKNOWN INDICATION
  11. ANGIOTENSIN II RECPTOR BLOCKERS [Concomitant]
     Indication: PRODUCT USED FOR UNKNOWN INDICATION
  12. DIURETICS [Concomitant]
     Indication: PRODUCT USED FOR UNKNOWN INDICATION
  13. NIASPAN [Suspect]
     Indication: ARTERIOSCLEROSIS
     Route: 048
     Dates: start: 20061031, end: 20110212

REACTIONS (1)
  - NEOPLASM MALIGNANT [None]
